FAERS Safety Report 8806730 (Version 2)
Quarter: 2014Q2

REPORT INFORMATION
  Report Type: Spontaneous
  Country: JP (occurrence: JP)
  Receive Date: 20120925
  Receipt Date: 20140627
  Transmission Date: 20141212
  Serious: Yes (Hospitalization, Other)
  Sender: FDA-Public Use
  Company Number: PHHY2012JP081948

PATIENT
  Age: 70 Year
  Sex: Female

DRUGS (6)
  1. CARBOPLATIN [Suspect]
     Dosage: 400-450 MG, UNK
  2. CARBOPLATIN [Suspect]
     Dosage: 350-400 MG, UNK
  3. CARBOPLATIN [Suspect]
     Dosage: 135 MG, UNK
  4. PACLITAXEL [Suspect]
     Dosage: 240 MG, UNK
  5. PACLITAXEL [Suspect]
     Dosage: 190-240 MG, UNK
  6. PACLITAXEL [Suspect]
     Dosage: 75 MG, UNK

REACTIONS (4)
  - White blood cell count decreased [Unknown]
  - Neutrophil count decreased [Unknown]
  - Metastases to liver [Recovered/Resolved]
  - Hepatic cancer metastatic [Recovered/Resolved]
